FAERS Safety Report 14363888 (Version 2)
Quarter: 2018Q2

REPORT INFORMATION
  Report Type: Spontaneous
  Country: US (occurrence: US)
  Receive Date: 20180108
  Receipt Date: 20180423
  Transmission Date: 20180711
  Serious: Yes (Death, Other)
  Sender: FDA-Public Use
  Company Number: US-BRISTOL-MYERS SQUIBB COMPANY-BMS-2018-000930

PATIENT
  Sex: Female

DRUGS (2)
  1. OPDIVO [Suspect]
     Active Substance: NIVOLUMAB
     Indication: BRONCHIAL CARCINOMA
     Dosage: 60 MG, Q3WK
     Route: 042
     Dates: start: 20170830
  2. YERVOY [Suspect]
     Active Substance: IPILIMUMAB
     Indication: BRONCHIAL CARCINOMA
     Dosage: 180 MG, Q3WK
     Route: 042
     Dates: start: 20170830

REACTIONS (2)
  - Death [Fatal]
  - Product use in unapproved indication [Unknown]
